FAERS Safety Report 9466697 (Version 1)
Quarter: 2013Q3

REPORT INFORMATION
  Report Type: Spontaneous
  Country: US (occurrence: US)
  Receive Date: 20130820
  Receipt Date: 20130820
  Transmission Date: 20140515
  Serious: Yes (Hospitalization)
  Sender: FDA-Public Use
  Company Number: US-B.I. PHARMACEUTICALS,INC./RIDGEFIELD-2013-BI-24624BP

PATIENT
  Age: 53 Year
  Sex: Male
  Weight: 68 kg

DRUGS (14)
  1. SPIRIVA [Suspect]
     Indication: CHRONIC OBSTRUCTIVE PULMONARY DISEASE
     Dosage: 18 MCG
     Route: 055
     Dates: start: 201306
  2. TRENTAL [Concomitant]
     Dosage: 1200 MG
     Route: 048
  3. LISINOPRIL [Concomitant]
     Indication: HYPERTENSION
     Dosage: 10 MG
     Route: 048
  4. LOVASTATIN [Concomitant]
     Indication: BLOOD CHOLESTEROL INCREASED
     Dosage: 40 MG
     Route: 048
  5. COUMADIN [Concomitant]
     Indication: ARTIFICIAL HEART IMPLANT
     Route: 048
  6. CEFUROXIME [Concomitant]
     Dosage: 1000 MG
     Route: 048
  7. MAGNESIUM [Concomitant]
     Dosage: 400 MEQ
     Route: 048
  8. COREG [Concomitant]
     Indication: HYPERTENSION
     Dosage: 50 MG
     Route: 048
  9. FOLIC ACID [Concomitant]
     Dosage: 1 MG
     Route: 048
  10. SYNTHROID [Concomitant]
     Indication: HYPOTHYROIDISM
     Dosage: 25 MCG
     Route: 048
  11. FLORINEF [Concomitant]
     Indication: FLUID RETENTION
     Dosage: 0.1 MG
     Route: 048
  12. POTASSIUM CL [Concomitant]
     Dosage: 20 MEQ
     Route: 048
  13. AMIODARONE [Concomitant]
     Indication: HEART SOUNDS
     Dosage: 200 MG
     Route: 048
  14. TOPAMAX [Concomitant]
     Dosage: 25 MG
     Route: 048

REACTIONS (1)
  - Bacterial infection [Not Recovered/Not Resolved]
